FAERS Safety Report 8980022 (Version 1)
Quarter: 2012Q4

REPORT INFORMATION
  Report Type: 
  Country: US (occurrence: US)
  Receive Date: 20121221
  Receipt Date: 20121221
  Transmission Date: 20130627
  Serious: Yes (Life-Threatening, Other)
  Sender: FDA-Public Use
  Company Number: CHPA2012US025659

PATIENT
  Age: 73 Year
  Sex: Male

DRUGS (6)
  1. MAALOX UNKNOWN [Suspect]
     Indication: GASTROOESOPHAGEAL REFLUX DISEASE
     Dosage: 2 TABLETS, TID
     Route: 048
  2. METOPROLOL [Concomitant]
     Dosage: Unk, Unk
  3. BABY ASPIRIN [Concomitant]
     Dosage: Unk, Unk
  4. SIMVASTATIN [Concomitant]
     Dosage: Unk, Unk
  5. DEXILANT [Concomitant]
     Dosage: Unk, Unk
  6. ACIPHEX [Concomitant]
     Dosage: Unk, Unk

REACTIONS (7)
  - Malaise [Recovered/Resolved]
  - Myocardial infarction [Recovered/Resolved]
  - Visual acuity reduced [Recovered/Resolved]
  - Blood cholesterol decreased [Unknown]
  - Therapeutic response unexpected [Unknown]
  - Off label use [Unknown]
  - Incorrect drug administration duration [Unknown]
